FAERS Safety Report 7186455-0 (Version None)
Quarter: 2010Q4

REPORT INFORMATION
  Report Type: 
  Country: None (occurrence: None)
  Receive Date: 20101222
  Receipt Date: 20101215
  Transmission Date: 20110411
  Serious: Yes (Death, Hospitalization)
  Sender: FDA-Public Use
  Company Number: B0690097A

PATIENT
  Sex: Female

DRUGS (19)
  1. ALLI [Suspect]
     Dosage: 120MG PER DAY
     Route: 048
  2. RIVOTRIL [Concomitant]
  3. DIAZEPAM [Concomitant]
  4. GUTRON [Concomitant]
  5. LEVOTUSS [Concomitant]
  6. DUSPATAL [Concomitant]
  7. ZYPREXA [Concomitant]
  8. ANAFRANIL [Concomitant]
  9. TOPAMAX [Concomitant]
  10. LAMICTAL [Concomitant]
  11. EFFEXOR [Concomitant]
  12. FLUVOXAMINE MALEATE [Concomitant]
  13. HALDOL [Concomitant]
  14. PROZAC [Concomitant]
  15. HALCION [Concomitant]
  16. SAMYR [Concomitant]
  17. DELORAZEPAM [Concomitant]
  18. DESMOPRESSIN [Concomitant]
  19. DOMPERIDONE [Concomitant]

REACTIONS (6)
  - AMMONIA INCREASED [None]
  - ASPARTATE AMINOTRANSFERASE INCREASED [None]
  - BLOOD BILIRUBIN INCREASED [None]
  - HEPATIC FAILURE [None]
  - JAUNDICE [None]
  - LOSS OF CONSCIOUSNESS [None]
